FAERS Safety Report 8193730-X (Version None)
Quarter: 2012Q1

REPORT INFORMATION
  Report Type: 
  Country: None (occurrence: None)
  Receive Date: 20120308
  Receipt Date: 20120228
  Transmission Date: 20120608
  Serious: Yes (Other)
  Sender: FDA-Public Use
  Company Number: BR-ASTRAZENECA-2011SE48105

PATIENT
  Age: 64 Year
  Sex: Female
  Weight: 82 kg

DRUGS (6)
  1. CAPTOPRIL [Suspect]
     Indication: HYPERTENSION
     Dosage: BID
     Route: 048
     Dates: start: 20111201, end: 20120217
  2. ATENOLOL [Suspect]
     Indication: HYPERTENSION
     Route: 048
  3. AMLODIPINE BESYLATE [Concomitant]
     Indication: HYPERTENSION
     Route: 048
     Dates: start: 20100101
  4. TENORETIC 100 [Suspect]
     Indication: HYPERTENSION
     Dosage: ONCE A DAY
     Route: 048
     Dates: start: 20100101, end: 20100101
  5. ATACAND HCT [Suspect]
     Indication: HYPERTENSION
     Dosage: 16/12.5 MG ONCE A DAY
     Route: 048
     Dates: start: 20100101, end: 20120217
  6. LEVOTHYROXINE SODIUM [Concomitant]
     Route: 048
     Dates: start: 20040101

REACTIONS (8)
  - FALL [None]
  - HYPERTRIGLYCERIDAEMIA [None]
  - BLOOD PRESSURE INADEQUATELY CONTROLLED [None]
  - COUGH [None]
  - WEIGHT INCREASED [None]
  - OEDEMA PERIPHERAL [None]
  - DRUG INEFFECTIVE [None]
  - FOOT FRACTURE [None]
